FAERS Safety Report 5127406-X (Version None)
Quarter: 2006Q4

REPORT INFORMATION
  Report Type: 
  Country: None (occurrence: None)
  Receive Date: 20061012
  Receipt Date: 20061012
  Transmission Date: 20070319
  Serious: Yes (Other)
  Sender: FDA-Public Use
  Company Number: None

PATIENT
  Sex: Female
  Weight: 98 kg

DRUGS (3)
  1. ZONISAMIDE [Suspect]
     Indication: EPILEPSY
     Dosage: 100 MG + 200 ONE A DAY PO
     Route: 048
     Dates: start: 20060405, end: 20060410
  2. KEPPRA [Concomitant]
  3. FOSAMAX [Concomitant]

REACTIONS (3)
  - PARTIAL SEIZURES [None]
  - RASH [None]
  - THERAPEUTIC RESPONSE UNEXPECTED WITH DRUG SUBSTITUTION [None]
